FAERS Safety Report 12149035 (Version 4)
Quarter: 2016Q2

REPORT INFORMATION
  Report Type: Report from Study
  Country: ES (occurrence: ES)
  Receive Date: 20160304
  Receipt Date: 20160505
  Transmission Date: 20160815
  Serious: Yes (Other)
  Sender: FDA-Public Use
  Company Number: PHHY2016ES026527

PATIENT
  Sex: Male
  Weight: 70 kg

DRUGS (6)
  1. TAMSULOSINA [Concomitant]
     Active Substance: TAMSULOSIN HYDROCHLORIDE
     Indication: BENIGN PROSTATIC HYPERPLASIA
     Dosage: 4 MG, UNK
     Route: 065
  2. TRAMETINIB [Suspect]
     Active Substance: TRAMETINIB
     Indication: METASTATIC MALIGNANT MELANOMA
     Dosage: 1 MG, QD
     Route: 065
     Dates: start: 20160308
  3. CODEISAN [Concomitant]
     Indication: COUGH
     Route: 065
  4. NEBIVOLOL. [Concomitant]
     Active Substance: NEBIVOLOL
     Indication: HYPERTENSION
     Dosage: UNK UNK, QD
     Route: 065
  5. DABRAFENIB [Suspect]
     Active Substance: DABRAFENIB
     Indication: METASTATIC MALIGNANT MELANOMA
     Dosage: 100 MG, Q12H
     Route: 048
     Dates: start: 20151027, end: 20160223
  6. DABRAFENIB [Suspect]
     Active Substance: DABRAFENIB
     Dosage: 75 MG, Q12H
     Route: 048
     Dates: start: 20160308

REACTIONS (3)
  - Chest pain [Recovered/Resolved]
  - Oedema peripheral [Recovered/Resolved]
  - Arthritis [Recovered/Resolved]
